FAERS Safety Report 8193775-X (Version None)
Quarter: 2012Q1

REPORT INFORMATION
  Report Type: 
  Country: None (occurrence: None)
  Receive Date: 20120308
  Receipt Date: 20120222
  Transmission Date: 20120608
  Serious: Yes (Other)
  Sender: FDA-Public Use
  Company Number: TN-WATSON-2012-03475

PATIENT
  Age: 38 Year
  Sex: Male

DRUGS (2)
  1. TACROLIMUS [Suspect]
     Indication: RENAL TRANSPLANT
     Dosage: 10 MG, DAILY
     Dates: start: 20080318
  2. THEOPHYLLINE [Suspect]
     Indication: PRODUCT USED FOR UNKNOWN INDICATION
     Dosage: 300 MG, DAILY
     Dates: start: 20090617

REACTIONS (3)
  - RENAL IMPAIRMENT [None]
  - DRUG INTERACTION [None]
  - DRUG LEVEL INCREASED [None]
